FAERS Safety Report 7943321-8 (Version None)
Quarter: 2011Q4

REPORT INFORMATION
  Report Type: 
  Country: None (occurrence: None)
  Receive Date: 20111128
  Receipt Date: 20111124
  Transmission Date: 20120403
  Serious: Yes (Death, Other)
  Sender: FDA-Public Use
  Company Number: PHHY2011JP103182

PATIENT
  Age: 32 Year
  Sex: Female

DRUGS (1)
  1. CARBAMAZEPINE [Suspect]

REACTIONS (10)
  - GINGIVAL SWELLING [None]
  - CONVULSION [None]
  - RASH [None]
  - MYOCLONUS [None]
  - NYSTAGMUS [None]
  - ROAD TRAFFIC ACCIDENT [None]
  - SOMNOLENCE [None]
  - HEADACHE [None]
  - DIZZINESS [None]
  - FATIGUE [None]
